FAERS Safety Report 18371962 (Version 2)
Quarter: 2020Q4

REPORT INFORMATION
  Report Type: Spontaneous
  Country: AT (occurrence: AT)
  Receive Date: 20201012
  Receipt Date: 20201214
  Transmission Date: 20210114
  Serious: Yes (Other)
  Sender: FDA-Public Use
  Company Number: AT-TEVA-2020-AT-1837699

PATIENT
  Age: 38 Year
  Sex: Female

DRUGS (1)
  1. AJOVY [Suspect]
     Active Substance: FREMANEZUMAB-VFRM
     Route: 065

REACTIONS (9)
  - Depression [Unknown]
  - Pruritus [Unknown]
  - Chills [Recovered/Resolved]
  - Feeling of despair [Unknown]
  - Taste disorder [Unknown]
  - Hyperhidrosis [Recovering/Resolving]
  - Influenza like illness [Recovering/Resolving]
  - Suicidal ideation [Unknown]
  - Decreased appetite [Unknown]
